FAERS Safety Report 21619571 (Version 2)
Quarter: 2022Q4

REPORT INFORMATION
  Report Type: Report from Study
  Country: US (occurrence: US)
  Receive Date: 20221121
  Receipt Date: 20221124
  Transmission Date: 20230113
  Serious: No
  Sender: FDA-Public Use
  Company Number: US-002147023-NVSC2022US259063

PATIENT
  Sex: Female

DRUGS (1)
  1. KESIMPTA [Suspect]
     Active Substance: OFATUMUMAB
     Indication: Multiple sclerosis
     Dosage: 20 MG
     Route: 058
     Dates: start: 20221111

REACTIONS (6)
  - Influenza like illness [Recovering/Resolving]
  - Hypersomnia [Recovering/Resolving]
  - Somnolence [Recovering/Resolving]
  - Pain [Recovering/Resolving]
  - Nausea [Recovering/Resolving]
  - Exposure to SARS-CoV-2 [Recovering/Resolving]
